FAERS Safety Report 8778721 (Version 1)
Quarter: 2012Q4

REPORT INFORMATION
  Report Type: Report from Study
  Country: HU (occurrence: HU)
  Receive Date: 20120912
  Receipt Date: 20120912
  Transmission Date: 20130627
  Serious: Yes (Hospitalization, Other)
  Sender: FDA-Public Use
  Company Number: HU-ROCHE-1122744

PATIENT
  Sex: Female

DRUGS (1)
  1. XELODA [Suspect]
     Indication: BREAST CANCER
     Dosage: dose:2 x 4
     Route: 048
     Dates: start: 20090427

REACTIONS (5)
  - Vomiting [Unknown]
  - Diarrhoea [Unknown]
  - Wound [Unknown]
  - Pain in extremity [Unknown]
  - Pain in extremity [Unknown]
